FAERS Safety Report 15811884 (Version 2)
Quarter: 2019Q1

REPORT INFORMATION
  Report Type: Spontaneous
  Country: US (occurrence: US)
  Receive Date: 20190111
  Receipt Date: 20190111
  Transmission Date: 20190417
  Serious: Yes (Death)
  Sender: FDA-Public Use
  Company Number: US-BAYER-2019-001481

PATIENT
  Age: 62 Year
  Sex: Male

DRUGS (7)
  1. CYCLOBENZAPRINE. [Suspect]
     Active Substance: CYCLOBENZAPRINE
  2. GABAPENTIN. [Suspect]
     Active Substance: GABAPENTIN
  3. MELOXICAM. [Suspect]
     Active Substance: MELOXICAM
     Dosage: UNK
  4. NAPROXEN SODIUM ({= 220 MG) [Suspect]
     Active Substance: NAPROXEN SODIUM
     Dosage: UNK
     Route: 048
  5. CITALOPRAM [Suspect]
     Active Substance: CITALOPRAM HYDROBROMIDE
     Dosage: UNK
  6. BUPROPION. [Suspect]
     Active Substance: BUPROPION
     Dosage: UNK
  7. OXYCODONE [Suspect]
     Active Substance: OXYCODONE

REACTIONS (2)
  - Drug abuse [Fatal]
  - Toxicity to various agents [Fatal]
